FAERS Safety Report 4730738-8 (Version None)
Quarter: 2005Q3

REPORT INFORMATION
  Report Type: 
  Country: None (occurrence: None)
  Receive Date: 20050725
  Receipt Date: 20050222
  Transmission Date: 20060218
  Serious: No
  Sender: FDA-Public Use
  Company Number: USA050291529

PATIENT
  Age: 48 Year
  Sex: Male
  Weight: 91 kg

DRUGS (3)
  1. STRATTERA [Suspect]
     Indication: ATTENTION DEFICIT/HYPERACTIVITY DISORDER
     Dosage: 140 MG DAY
     Dates: start: 20040101
  2. NAPROSYN(NAPROXEN MEPHA) [Concomitant]
  3. ZANTAC [Concomitant]

REACTIONS (2)
  - ERECTILE DYSFUNCTION [None]
  - PRESCRIBED OVERDOSE [None]
